FAERS Safety Report 5452617-3 (Version None)
Quarter: 2007Q3

REPORT INFORMATION
  Report Type: 
  Country: None (occurrence: None)
  Receive Date: 20070914
  Receipt Date: 20070913
  Transmission Date: 20080115
  Serious: Yes (Death)
  Sender: FDA-Public Use
  Company Number: JP-BRISTOL-MYERS SQUIBB COMPANY-13907035

PATIENT
  Sex: Male

DRUGS (2)
  1. CISPLATIN [Suspect]
     Indication: PLEURAL MESOTHELIOMA
     Route: 042
     Dates: start: 20070820, end: 20070820
  2. ALIMTA [Suspect]
     Indication: PLEURAL MESOTHELIOMA
     Route: 042
     Dates: start: 20070820, end: 20070820

REACTIONS (2)
  - CHEST PAIN [None]
  - GASTRIC PERFORATION [None]
